FAERS Safety Report 24135772 (Version 1)
Quarter: 2024Q3

REPORT INFORMATION
  Report Type: Spontaneous
  Country: IT (occurrence: IT)
  Receive Date: 20240725
  Receipt Date: 20240725
  Transmission Date: 20241017
  Serious: Yes (Other)
  Sender: AUROBINDO
  Company Number: IT-MINISAL02-995433

PATIENT
  Age: 17 Year
  Sex: Female

DRUGS (3)
  1. LORAZEPAM [Suspect]
     Active Substance: LORAZEPAM
     Indication: Anorexia nervosa
     Dosage: 45 GTT DROPS (DATA DI INIZIO TERAPIA ATTRIBUITA D^UFFICIO.)
     Route: 048
  2. SERTRALINE [Suspect]
     Active Substance: SERTRALINE HYDROCHLORIDE
     Indication: Anorexia nervosa
     Dosage: 50 MILLIGRAM (DATA DI INIZIO TERAPIA ATTRIBUITA D^UFFICIO.)
     Route: 048
  3. QUETIAPINE [Suspect]
     Active Substance: QUETIAPINE
     Indication: Anorexia nervosa
     Dosage: 125 MILLIGRAM (2 COMPRESSE DA 50 MG L^UNA + 1 COMPRESSA DA 25 MG, AL GIORNO.DATA DI INIZIO TERAPIA A
     Route: 048

REACTIONS (1)
  - Urinary retention [Recovered/Resolved]

NARRATIVE: CASE EVENT DATE: 20240415
